FAERS Safety Report 23858466 (Version 1)
Quarter: 2024Q2

REPORT INFORMATION
  Report Type: Spontaneous
  Country: RS (occurrence: RS)
  Receive Date: 20240515
  Receipt Date: 20240515
  Transmission Date: 20240716
  Serious: Yes (Death, Other)
  Sender: FDA-Public Use
  Company Number: RS-002147023-NVSC2024RS100954

PATIENT

DRUGS (3)
  1. RUXOLITINIB [Suspect]
     Active Substance: RUXOLITINIB
     Indication: Myelofibrosis
     Dosage: 20 MG, BID
     Route: 065
     Dates: start: 202206
  2. RUXOLITINIB [Suspect]
     Active Substance: RUXOLITINIB
     Dosage: 15 MG, BID
     Route: 065
     Dates: start: 202212
  3. AZACITIDINE [Suspect]
     Active Substance: AZACITIDINE
     Indication: Myelofibrosis
     Dosage: UNK
     Route: 065
     Dates: start: 202308

REACTIONS (10)
  - Death [Fatal]
  - Gastritis [Unknown]
  - Intestinal haemorrhage [Unknown]
  - Extramedullary haemopoiesis [Unknown]
  - Hepatotoxicity [Unknown]
  - Ileus [Unknown]
  - Klebsiella infection [Unknown]
  - Organic brain syndrome [Unknown]
  - Urinary tract infection [Unknown]
  - Urosepsis [Unknown]

NARRATIVE: CASE EVENT DATE: 20221201
